FAERS Safety Report 5366886-1 (Version None)
Quarter: 2007Q2

REPORT INFORMATION
  Report Type: 
  Country: None (occurrence: None)
  Receive Date: 20070622
  Receipt Date: 20061107
  Transmission Date: 20071010
  Serious: No
  Sender: FDA-Public Use
  Company Number: US-ASTRAZENECA-2006UW22162

PATIENT
  Age: 77 Year
  Sex: Female

DRUGS (4)
  1. RHINOCORT [Suspect]
     Indication: NASAL CONGESTION
     Dosage: 120 METER SPRAY UNIT
     Route: 045
     Dates: start: 20061017
  2. FLOVENT [Concomitant]
  3. ALBUTEROL [Concomitant]
  4. SYNTHROID [Concomitant]

REACTIONS (1)
  - HYPOTENSION [None]
